FAERS Safety Report 22226880 (Version 1)
Quarter: 2023Q2

REPORT INFORMATION
  Report Type: Report from Study
  Country: IT (occurrence: IT)
  Receive Date: 20230419
  Receipt Date: 20230419
  Transmission Date: 20230721
  Serious: Yes (Other)
  Sender: FDA-Public Use
  Company Number: None

PATIENT
  Age: 11 Year
  Sex: Male
  Weight: 45 kg

DRUGS (9)
  1. CYCLOPHOSPHAMIDE [Suspect]
     Active Substance: CYCLOPHOSPHAMIDE
     Indication: Burkitt^s lymphoma
     Dosage: 207.36 MG/DAY
     Route: 042
     Dates: start: 20230221, end: 20230226
  2. METHOTREXATE (METHOTREXATE SODIUM) [Suspect]
     Active Substance: METHOTREXATE SODIUM
     Indication: Burkitt^s lymphoma
     Dosage: 518.4 MG INFUSION IN 30 MIN. IV ON 21/02 + 4665.6 MG IV SLOW INFUSION IN 23.30 HRS ON 22/02/23
     Route: 042
     Dates: start: 20230221, end: 20230222
  3. RITUXIMAB [Suspect]
     Active Substance: RITUXIMAB
     Indication: Burkitt^s lymphoma
     Dosage: 519 MG/DAY
     Route: 042
     Dates: start: 20230220, end: 20230220
  4. DAUNORUBICIN [Suspect]
     Active Substance: DAUNORUBICIN
     Indication: Burkitt^s lymphoma
     Dosage: 25.92 MG/DAY
     Route: 042
     Dates: start: 20230225, end: 20230226
  5. VINCRISTINE [Suspect]
     Active Substance: VINCRISTINE
     Indication: Burkitt^s lymphoma
     Dosage: 1.55 MG/DAY
     Route: 042
     Dates: start: 20230221, end: 20230221
  6. FILGRASTIM [Concomitant]
     Active Substance: FILGRASTIM
     Dosage: 30 MU/0,5 ML
     Route: 042
     Dates: start: 20230303, end: 20230303
  7. PANTOPRAZOLE [Concomitant]
     Active Substance: PANTOPRAZOLE
     Dosage: 40 MG/DAY
     Route: 042
     Dates: start: 20230226, end: 20230301
  8. DIFLUCAN [Concomitant]
     Active Substance: FLUCONAZOLE
     Dosage: 270 MG/DAY
     Route: 042
     Dates: start: 20230226, end: 20230306
  9. FILGRASTIM [Concomitant]
     Active Substance: FILGRASTIM
     Dosage: 30 MU/0,5 ML/DAY
     Route: 042
     Dates: start: 20230303, end: 20230307

REACTIONS (5)
  - Hypogammaglobulinaemia [Unknown]
  - Drug-induced liver injury [Recovered/Resolved]
  - Pancytopenia [Recovered/Resolved]
  - Anaemia [Recovered/Resolved]
  - Stomatitis [Recovered/Resolved]

NARRATIVE: CASE EVENT DATE: 20230228
